FAERS Safety Report 19693823 (Version 3)
Quarter: 2022Q3

REPORT INFORMATION
  Report Type: Spontaneous
  Country: JP (occurrence: JP)
  Receive Date: 20210812
  Receipt Date: 20220926
  Transmission Date: 20221027
  Serious: Yes (Death, Other)
  Sender: FDA-Public Use
  Company Number: JP-BAYER-2021-190643

PATIENT
  Age: 67 Year
  Sex: Female

DRUGS (3)
  1. IOPAMIRON [Suspect]
     Active Substance: IOPAMIDOL
     Indication: Computerised tomogram
     Dosage: 100 ML, SINGLE
     Route: 042
     Dates: start: 20210804, end: 20210804
  2. MAGNESIUM OXIDE [Concomitant]
     Active Substance: MAGNESIUM OXIDE
     Indication: Constipation
     Dosage: DAILY DOSE 990 MG
     Route: 048
     Dates: start: 20190820
  3. PREDONINE [Concomitant]
     Active Substance: PREDNISOLONE
     Indication: Allergy prophylaxis
     Dosage: 30 MG
     Route: 048
     Dates: start: 20210804

REACTIONS (1)
  - Anaphylactic shock [Fatal]

NARRATIVE: CASE EVENT DATE: 20210804
